FAERS Safety Report 7809514-5 (Version None)
Quarter: 2011Q4

REPORT INFORMATION
  Report Type: 
  Country: None (occurrence: None)
  Receive Date: 20111012
  Receipt Date: 20110930
  Transmission Date: 20120403
  Serious: Yes (Hospitalization)
  Sender: FDA-Public Use
  Company Number: PHHY2011EC87879

PATIENT
  Sex: Female

DRUGS (1)
  1. DIOVAN HCT [Suspect]
     Indication: HYPERTENSION
     Dosage: 1 DF, 80MG OF VALS AND 12.5MG OF HYDR PER DAY
     Route: 048

REACTIONS (2)
  - CONDITION AGGRAVATED [None]
  - PTERYGIUM [None]
